FAERS Safety Report 8033928-4 (Version None)
Quarter: 2012Q1

REPORT INFORMATION
  Report Type: 
  Country: None (occurrence: None)
  Receive Date: 20120110
  Receipt Date: 20120104
  Transmission Date: 20120608
  Serious: Yes (Hospitalization)
  Sender: FDA-Public Use
  Company Number: FR-PFIZER INC-2012001655

PATIENT
  Age: 47 Year
  Sex: Female

DRUGS (4)
  1. CYTARABINE [Suspect]
     Indication: HODGKIN'S DISEASE STAGE III
     Dosage: 200 MG/M2, ON DAY 1 AND DAY 2
     Route: 042
     Dates: start: 20110927, end: 20111004
  2. CRESTOR [Concomitant]
     Indication: DYSLIPIDAEMIA
     Dosage: UNK
  3. CYTARABINE [Suspect]
     Dosage: 3000 MG/M2 ON DAYS 1, 3 AND 5
     Route: 042
     Dates: start: 20111116, end: 20111120
  4. LEVOTHYROXINE SODIUM [Concomitant]
     Indication: HYPOTHYROIDISM
     Dosage: UNK

REACTIONS (1)
  - KERATITIS [None]
